FAERS Safety Report 7554867 (Version 7)
Quarter: 2014Q2

REPORT INFORMATION
  Report Type: Spontaneous
  Country: US (occurrence: US)
  Receive Date: 20100826
  Receipt Date: 20140416
  Transmission Date: 20141212
  Serious: Yes (Other)
  Sender: FDA-Public Use
  Company Number: US-JNJFOC-20100805955

PATIENT
  Age: 30 Year
  Sex: Female
  Weight: 63.5 kg

DRUGS (22)
  1. REMICADE [Suspect]
     Indication: CROHN^S DISEASE
     Dosage: 400MG
     Route: 042
     Dates: end: 20110511
  2. REMICADE [Suspect]
     Indication: CROHN^S DISEASE
     Dosage: 400MG
     Route: 042
     Dates: start: 20091125
  3. REMICADE [Suspect]
     Indication: CROHN^S DISEASE
     Dosage: 400 MG
     Route: 042
     Dates: start: 20110511
  4. REMICADE [Suspect]
     Indication: CROHN^S DISEASE
     Dosage: 8TH INFUSION AT 80 ML/HR RATE; DOSE REPORTED AS ^4 VIALS^ 400MG
     Route: 042
     Dates: start: 20100818
  5. REMICADE [Suspect]
     Indication: CROHN^S DISEASE
     Route: 042
     Dates: end: 20110511
  6. REMICADE [Suspect]
     Indication: COLITIS ULCERATIVE
     Dosage: 400 MG
     Route: 042
     Dates: start: 20110511
  7. REMICADE [Suspect]
     Indication: COLITIS ULCERATIVE
     Dosage: 400MG
     Route: 042
     Dates: end: 20110511
  8. REMICADE [Suspect]
     Indication: COLITIS ULCERATIVE
     Route: 042
     Dates: end: 20110511
  9. REMICADE [Suspect]
     Indication: COLITIS ULCERATIVE
     Dosage: 8TH INFUSION AT 80 ML/HR RATE; DOSE REPORTED AS ^4 VIALS^ 400MG
     Route: 042
     Dates: start: 20100818
  10. REMICADE [Suspect]
     Indication: COLITIS ULCERATIVE
     Dosage: 400MG
     Route: 042
     Dates: start: 20091125
  11. CLARITIN [Concomitant]
     Indication: PREMEDICATION
     Route: 048
  12. CLARITIN [Concomitant]
     Indication: PREMEDICATION
     Route: 048
     Dates: start: 20111105
  13. TYLENOL [Concomitant]
     Indication: PREMEDICATION
     Route: 048
  14. TYLENOL [Concomitant]
     Indication: PREMEDICATION
     Route: 048
     Dates: start: 20111105
  15. SOLU-MEDROL [Concomitant]
     Indication: PREMEDICATION
     Route: 042
     Dates: start: 20111105
  16. SOLU-MEDROL [Concomitant]
     Indication: PREMEDICATION
     Route: 042
  17. PEPCID [Concomitant]
     Indication: PREMEDICATION
     Dosage: 2 DAYS PRIOR TO THE INFUSION
     Route: 048
  18. BENADRYL [Concomitant]
     Indication: PREMEDICATION
     Route: 042
  19. IMURAN [Concomitant]
     Route: 065
  20. SYNTHROID [Concomitant]
     Route: 065
  21. CALCIUM [Concomitant]
     Route: 065
  22. MULTIVITAMINS [Concomitant]
     Route: 065

REACTIONS (17)
  - Epstein-Barr virus infection [Unknown]
  - Herpes simplex [Recovered/Resolved]
  - Lupus-like syndrome [Recovered/Resolved]
  - Chest pain [Recovered/Resolved]
  - Dyspnoea [Recovered/Resolved]
  - Feeling hot [Recovered/Resolved]
  - Discomfort [Recovered/Resolved]
  - Infusion related reaction [Recovered/Resolved]
  - Fatigue [Recovered/Resolved]
  - Pruritus [Recovered/Resolved]
  - Vision blurred [Recovered/Resolved]
  - Myalgia [Recovered/Resolved]
  - Vulval ulceration [Recovered/Resolved]
  - Oropharyngeal pain [Recovered/Resolved]
  - Abdominal pain [Recovered/Resolved]
  - Nausea [Recovered/Resolved]
  - Decreased appetite [Recovered/Resolved]
